FAERS Safety Report 14362738 (Version 2)
Quarter: 2018Q1

REPORT INFORMATION
  Report Type: Report from Study
  Country: US (occurrence: US)
  Receive Date: 20180108
  Receipt Date: 20180206
  Transmission Date: 20180509
  Serious: Yes (Hospitalization, Other)
  Sender: FDA-Public Use
  Company Number: US-BIOGEN-2018BI00505830

PATIENT
  Sex: Female

DRUGS (1)
  1. AVONEX [Suspect]
     Active Substance: INTERFERON BETA-1A
     Indication: MULTIPLE SCLEROSIS
     Route: 030

REACTIONS (18)
  - Abdominal discomfort [Unknown]
  - Gait inability [Unknown]
  - General physical health deterioration [Unknown]
  - Peritonitis [Unknown]
  - Nasopharyngitis [Unknown]
  - Urinary incontinence [Unknown]
  - Anger [Unknown]
  - Pain [Unknown]
  - Autoscopy [Unknown]
  - Appendicitis perforated [Unknown]
  - Fall [Recovered/Resolved]
  - Aspiration [Unknown]
  - Swelling [Unknown]
  - Dizziness [Unknown]
  - Malaise [Unknown]
  - Mental disorder [Unknown]
  - Haematoma [Unknown]
  - Pneumonia [Unknown]
